FAERS Safety Report 20536978 (Version 1)
Quarter: 2022Q1

REPORT INFORMATION
  Report Type: Spontaneous
  Country: GB (occurrence: GB)
  Receive Date: 20220302
  Receipt Date: 20220302
  Transmission Date: 20220423
  Serious: Yes (Other)
  Sender: FDA-Public Use
  Company Number: GB-ABBVIE-22K-167-4295973-00

PATIENT
  Age: 28 Year
  Sex: Male

DRUGS (2)
  1. EPILIM [Suspect]
     Active Substance: VALPROATE SODIUM
     Indication: Product used for unknown indication
     Dosage: HIGH DOSE
     Route: 065
  2. EPILIM [Suspect]
     Active Substance: VALPROATE SODIUM
     Dosage: SWITCHED TO EPILIM CHRONO TWICE DAILY AT A REDUCED DOSE
     Route: 065

REACTIONS (4)
  - Epilepsy [Recovering/Resolving]
  - Fatigue [Recovered/Resolved]
  - Sluggishness [Recovered/Resolved]
  - Tremor [Recovered/Resolved]
